FAERS Safety Report 10066377 (Version 1)
Quarter: 2014Q2

REPORT INFORMATION
  Report Type: Spontaneous
  Country: FR (occurrence: FR)
  Receive Date: 20140408
  Receipt Date: 20140408
  Transmission Date: 20141212
  Serious: Yes (Hospitalization, Other)
  Sender: FDA-Public Use
  Company Number: FR-JNJFOC-20140318184

PATIENT
  Age: 26 Year
  Sex: Male

DRUGS (19)
  1. HALDOL [Suspect]
     Indication: MENTAL DISORDER
     Route: 048
     Dates: start: 20131202
  2. HALDOL [Suspect]
     Indication: MENTAL DISORDER
     Route: 048
     Dates: start: 201312, end: 20131223
  3. DEPAKOTE [Suspect]
     Indication: PSYCHOTIC DISORDER
     Route: 048
     Dates: start: 20131120, end: 20131128
  4. DEPAKOTE [Suspect]
     Indication: PSYCHOTIC DISORDER
     Route: 048
     Dates: start: 20131202
  5. DEPAKOTE [Suspect]
     Indication: PSYCHOTIC DISORDER
     Route: 048
     Dates: start: 20131128, end: 20131202
  6. ZYPREXA [Suspect]
     Indication: MENTAL DISORDER
     Route: 048
     Dates: start: 20140221, end: 20140224
  7. ZYPREXA [Suspect]
     Indication: MENTAL DISORDER
     Route: 048
     Dates: start: 20140216, end: 20140221
  8. ZYPREXA [Suspect]
     Indication: MENTAL DISORDER
     Route: 048
     Dates: start: 20140110, end: 20140128
  9. ZYPREXA [Suspect]
     Indication: MENTAL DISORDER
     Route: 048
     Dates: start: 20140128, end: 20140216
  10. ZYPREXA [Suspect]
     Indication: MENTAL DISORDER
     Route: 048
     Dates: start: 20131120, end: 20131202
  11. TERCIAN [Suspect]
     Indication: MENTAL DISORDER
     Route: 048
     Dates: start: 20140106, end: 20140115
  12. TERCIAN [Suspect]
     Indication: MENTAL DISORDER
     Dosage: STRENGTH: 40 MG/ML, 4 % IN DROPS, 3 TO 4 TIMES PER DAY
     Route: 048
     Dates: start: 20131121, end: 20131204
  13. VALIUM [Concomitant]
     Indication: MENTAL DISORDER
     Route: 048
     Dates: start: 20131202
  14. IMOVANE [Concomitant]
     Indication: MENTAL DISORDER
     Route: 048
     Dates: start: 20131120
  15. RISPERDAL [Concomitant]
     Indication: MENTAL DISORDER
     Route: 048
     Dates: start: 20140113
  16. RISPERDAL [Concomitant]
     Indication: MENTAL DISORDER
     Route: 048
     Dates: start: 20140121
  17. RISPERDAL [Concomitant]
     Indication: MENTAL DISORDER
     Route: 048
     Dates: start: 20140215
  18. LOXAPAC [Concomitant]
     Indication: PRODUCT USED FOR UNKNOWN INDICATION
     Route: 065
     Dates: start: 20131120, end: 20131121
  19. LEPTICUR [Concomitant]
     Indication: PRODUCT USED FOR UNKNOWN INDICATION
     Route: 065

REACTIONS (1)
  - Weight increased [Not Recovered/Not Resolved]
